FAERS Safety Report 5008094-X (Version None)
Quarter: 2006Q2

REPORT INFORMATION
  Report Type: 
  Country: None (occurrence: None)
  Receive Date: 20060517
  Receipt Date: 20060502
  Transmission Date: 20061013
  Serious: Yes (Death, Hospitalization)
  Sender: FDA-Public Use
  Company Number: US179237

PATIENT
  Age: 56 Year
  Sex: Female
  Weight: 70 kg

DRUGS (3)
  1. ENBREL [Suspect]
     Indication: RHEUMATOID ARTHRITIS
     Dosage: 25 MG, 2 IN 1 WEEKS, SC
     Route: 058
  2. METHOTREXATE [Concomitant]
  3. PREDNYLIDENE          (PREDNYLIDENE) [Concomitant]

REACTIONS (10)
  - ACIDOSIS [None]
  - ACUTE RESPIRATORY DISTRESS SYNDROME [None]
  - CANDIDIASIS [None]
  - ESCHERICHIA BACTERAEMIA [None]
  - HAEMODIALYSIS [None]
  - HYPOTENSION [None]
  - MULTI-ORGAN FAILURE [None]
  - PNEUMONIA PNEUMOCOCCAL [None]
  - RENAL FAILURE ACUTE [None]
  - SEPTIC SHOCK [None]
